FAERS Safety Report 5478094-4 (Version None)
Quarter: 2007Q4

REPORT INFORMATION
  Report Type: 
  Country: None (occurrence: None)
  Receive Date: 20071005
  Receipt Date: 20061005
  Transmission Date: 20080405
  Serious: No
  Sender: FDA-Public Use
  Company Number: US-BRISTOL-MYERS SQUIBB COMPANY-13533336

PATIENT
  Age: 65 Year
  Sex: Female

DRUGS (5)
  1. AVAPRO [Suspect]
  2. LASIX [Suspect]
  3. POTASSIUM CHLORIDE [Concomitant]
  4. CATAPRES [Concomitant]
     Dosage: 3*DAY 0.2
  5. MINOXIDIL [Concomitant]

REACTIONS (1)
  - HEART RATE IRREGULAR [None]
